FAERS Safety Report 7454360-8 (Version None)
Quarter: 2011Q2

REPORT INFORMATION
  Report Type: 
  Country: None (occurrence: None)
  Receive Date: 20110503
  Receipt Date: 20110428
  Transmission Date: 20111010
  Serious: No
  Sender: FDA-Public Use
  Company Number: US-JNJFOC-20110412593

PATIENT
  Sex: Female

DRUGS (9)
  1. INVEGA SUSTENNA [Suspect]
     Indication: BIPOLAR DISORDER
     Route: 030
  2. GLUCOPHAGE [Concomitant]
     Indication: DIABETES MELLITUS
     Route: 048
  3. ZYRTEC [Concomitant]
     Route: 048
  4. SEROQUEL [Concomitant]
     Route: 048
  5. ZOCOR [Concomitant]
  6. INSULIN [Concomitant]
     Indication: DIABETES MELLITUS
     Route: 058
  7. PRILOSEC [Concomitant]
     Route: 048
  8. SYNTHROID [Concomitant]
  9. THORAZINE [Concomitant]
     Route: 048

REACTIONS (1)
  - ALOPECIA [None]
